FAERS Safety Report 18377769 (Version 8)
Quarter: 2024Q4

REPORT INFORMATION
  Report Type: Spontaneous
  Country: CA (occurrence: CA)
  Receive Date: 20201013
  Receipt Date: 20241001
  Transmission Date: 20250114
  Serious: Yes (Hospitalization, Other)
  Sender: MYLAN
  Company Number: CA-PFIZER INC-2020389300

PATIENT
  Age: 63 Year
  Sex: Male

DRUGS (214)
  1. INSPRA [Suspect]
     Active Substance: EPLERENONE
     Indication: Product used for unknown indication
     Dosage: 50 MILLIGRAM, QD (50 MG 1 EVERY 1 DAYS)
     Route: 048
  2. INSPRA [Suspect]
     Active Substance: EPLERENONE
     Dosage: 50 MILLIGRAM, QD (50 MG 1 EVERY 1 DAYS)
     Route: 065
  3. INSPRA [Suspect]
     Active Substance: EPLERENONE
     Dosage: 50 MILLIGRAM, QD (50 MG 1 EVERY 1 DAYS)
     Route: 065
  4. INSPRA [Suspect]
     Active Substance: EPLERENONE
     Dosage: 50 MILLIGRAM, QD (50 MG 1 EVERY 1 DAYS)
     Route: 048
  5. INSPRA [Suspect]
     Active Substance: EPLERENONE
     Dosage: 50 MILLIGRAM, QD (50 MG 1 EVERY 1 DAYS)
     Route: 065
  6. INSPRA [Suspect]
     Active Substance: EPLERENONE
     Dosage: 50 MILLIGRAM, QD (50 MG 1 EVERY 1 DAYS)
     Route: 048
  7. INSPRA [Suspect]
     Active Substance: EPLERENONE
     Dosage: 50 MILLIGRAM, QD (50 MG 1 EVERY 1 DAYS)
     Route: 065
  8. INSPRA [Suspect]
     Active Substance: EPLERENONE
     Dosage: 50 MILLIGRAM, QD (50 MG 1 EVERY 1 DAYS)
     Route: 065
  9. INSPRA [Suspect]
     Active Substance: EPLERENONE
     Dosage: 50 MILLIGRAM
     Route: 065
  10. INSPRA [Suspect]
     Active Substance: EPLERENONE
     Dosage: 50 MILLIGRAM
     Route: 048
  11. INSPRA [Suspect]
     Active Substance: EPLERENONE
     Dosage: 50 MILLIGRAM, QD (1 EVERY 1 DAYS)
     Route: 048
  12. AMLODIPINE [Suspect]
     Active Substance: AMLODIPINE BESYLATE
     Indication: Product used for unknown indication
     Dosage: 2.5 MILLIGRAM, QD (2.5 MG 1 EVERY 1 DAYS)
     Route: 065
  13. AMLODIPINE [Suspect]
     Active Substance: AMLODIPINE BESYLATE
     Indication: Product used for unknown indication
     Dosage: 2.5 MILLIGRAM, QD (1 EVERY 1 DAYS)
     Route: 065
  14. AMLODIPINE [Suspect]
     Active Substance: AMLODIPINE BESYLATE
     Indication: Product used for unknown indication
     Dosage: 2.5 MILLIGRAM, QD (1 EVERY 24 HOURS)
     Route: 065
  15. AMLODIPINE [Suspect]
     Active Substance: AMLODIPINE BESYLATE
     Indication: Product used for unknown indication
     Dosage: 2.5 MILLIGRAM, QD (1 EVERY 1 DAYS)
     Route: 065
  16. PREGABALIN [Suspect]
     Active Substance: PREGABALIN
     Indication: Product used for unknown indication
     Dosage: 50 MILLIGRAM
     Route: 048
  17. PREGABALIN [Suspect]
     Active Substance: PREGABALIN
     Dosage: 50 MILLIGRAM, BID (2 EVERY 1 DAYS)
     Route: 048
  18. PREGABALIN [Suspect]
     Active Substance: PREGABALIN
     Indication: Product used for unknown indication
     Dosage: 50 MILLIGRAM, BID (50 MG 2 EVERY 1 DAYS)
     Route: 048
  19. ACETAMINOPHEN\TRAMADOL [Suspect]
     Active Substance: ACETAMINOPHEN\TRAMADOL
     Indication: Product used for unknown indication
     Dosage: UNK
     Route: 048
  20. MONTELUKAST [Suspect]
     Active Substance: MONTELUKAST
     Indication: Product used for unknown indication
     Dosage: 10 MILLIGRAM, QD (10 MG 1 EVERY 1 DAYS)
     Route: 048
  21. MONTELUKAST [Suspect]
     Active Substance: MONTELUKAST
     Dosage: 10 MILLIGRAM, QD (10 MG 1 EVERY 1 DAYS)
     Route: 065
  22. MONTELUKAST [Suspect]
     Active Substance: MONTELUKAST
     Dosage: 10 MILLIGRAM, QD (10 MG 1 EVERY 1 DAYS)
     Route: 065
  23. MONTELUKAST [Suspect]
     Active Substance: MONTELUKAST
     Dosage: 10 MILLIGRAM, QD (10 MG 1 EVERY 1 DAYS)
     Route: 048
  24. MONTELUKAST [Suspect]
     Active Substance: MONTELUKAST
     Dosage: 10 MILLIGRAM, QD (10 MG 1 EVERY 1 DAYS)
     Route: 065
  25. MONTELUKAST [Suspect]
     Active Substance: MONTELUKAST
     Dosage: 10 MILLIGRAM, QD (10 MG 1 EVERY 1 DAYS)
     Route: 048
  26. MONTELUKAST [Suspect]
     Active Substance: MONTELUKAST
     Dosage: 10 MILLIGRAM, QD (10 MG 1 EVERY 1 DAYS)
     Route: 048
  27. MONTELUKAST [Suspect]
     Active Substance: MONTELUKAST
     Dosage: 10 MILLIGRAM, QD (10 MG 1 EVERY 1 DAYS)
     Route: 065
  28. MONTELUKAST [Suspect]
     Active Substance: MONTELUKAST
     Dosage: 10 MILLIGRAM, QD (10 MG 1 EVERY 1 DAYS)
     Route: 065
  29. MONTELUKAST [Suspect]
     Active Substance: MONTELUKAST
     Dosage: 10 MILLIGRAM
     Route: 048
  30. MONTELUKAST [Suspect]
     Active Substance: MONTELUKAST
     Dosage: 10 MILLIGRAM
     Route: 065
  31. MONTELUKAST [Suspect]
     Active Substance: MONTELUKAST
     Indication: Product used for unknown indication
     Dosage: 10 MILLIGRAM, QD (10 MG 1 EVERY 1 DAYS)
     Route: 065
  32. MONTELUKAST [Suspect]
     Active Substance: MONTELUKAST
     Indication: Product used for unknown indication
     Dosage: 10 MILLIGRAM, QD (1 EVERY 1 DAYS)
     Route: 065
  33. MONTELUKAST [Suspect]
     Active Substance: MONTELUKAST
     Dosage: 10 MILLIGRAM, QD (1 EVERY 1 DAYS)
     Route: 048
  34. MONTELUKAST [Suspect]
     Active Substance: MONTELUKAST
     Dosage: 10 MILLIGRAM, QD (1 EVERY 1 DAYS)
     Route: 048
  35. MONTELUKAST [Suspect]
     Active Substance: MONTELUKAST
     Dosage: 10 MILLIGRAM, QD (1 EVERY 1 DAYS)
     Route: 065
  36. MONTELUKAST [Suspect]
     Active Substance: MONTELUKAST
     Dosage: 10 MILLIGRAM, QD (1 EVERY 1 DAYS)
     Route: 065
  37. MONTELUKAST [Suspect]
     Active Substance: MONTELUKAST
     Dosage: 10 MILLIGRAM, QD (1 EVERY 1 DAYS)
     Route: 048
  38. MONTELUKAST [Suspect]
     Active Substance: MONTELUKAST
     Dosage: 10 MILLIGRAM, QD (1 EVERY 1 DAYS)
     Route: 065
  39. MONTELUKAST [Suspect]
     Active Substance: MONTELUKAST
     Dosage: 10 MILLIGRAM, QD (1 EVERY 1 DAYS)
     Route: 065
  40. MONTELUKAST [Suspect]
     Active Substance: MONTELUKAST
     Dosage: 10 MILLIGRAM, QD (1 EVERY 1 DAYS)
     Route: 048
  41. MONTELUKAST [Suspect]
     Active Substance: MONTELUKAST
     Dosage: 10 MILLIGRAM, QD (1 EVERY 1 DAYS)
     Route: 065
  42. MONTELUKAST [Suspect]
     Active Substance: MONTELUKAST
     Dosage: 10 MILLIGRAM, QD (1 EVERY 1 DAYS)
     Route: 065
  43. CARVEDILOL [Suspect]
     Active Substance: CARVEDILOL
     Indication: Product used for unknown indication
     Dosage: 6.25 MILLIGRAM, BID (6.25 MG 2 EVERY 1 DAYS)
     Route: 065
  44. VARENICLINE TARTRATE [Suspect]
     Active Substance: VARENICLINE TARTRATE
     Indication: Product used for unknown indication
     Dosage: UNK
     Route: 065
  45. ALBUTEROL SULFATE [Suspect]
     Active Substance: ALBUTEROL SULFATE
     Indication: Product used for unknown indication
     Dosage: 2 DOSAGE FORM
     Route: 065
  46. ALBUTEROL SULFATE [Suspect]
     Active Substance: ALBUTEROL SULFATE
     Dosage: 2 DOSAGE FORM
     Route: 055
  47. ALBUTEROL SULFATE [Suspect]
     Active Substance: ALBUTEROL SULFATE
     Dosage: 2 DOSAGE FORM, QID (4 EVERY 1 DAYS)
     Route: 065
  48. ALBUTEROL SULFATE [Suspect]
     Active Substance: ALBUTEROL SULFATE
     Dosage: 2 DOSAGE FORM, QID (4 EVERY 1 DAYS)
     Route: 055
  49. ALBUTEROL SULFATE [Suspect]
     Active Substance: ALBUTEROL SULFATE
     Dosage: UNK
     Route: 048
  50. ALBUTEROL SULFATE [Suspect]
     Active Substance: ALBUTEROL SULFATE
     Indication: Product used for unknown indication
     Dosage: 2 DOSAGE FORM, QID (2 DF 4 EVERY 1 DAYS, METERED-DOSE (AEROSOL)
     Route: 065
  51. ALBUTEROL SULFATE [Suspect]
     Active Substance: ALBUTEROL SULFATE
     Dosage: 2 DOSAGE FORM, QID (2 DF 4 EVERY 1 DAYS, METERED-DOSE (AEROSOL)
     Route: 065
  52. ALVESCO [Suspect]
     Active Substance: CICLESONIDE
     Indication: Product used for unknown indication
     Dosage: 2 DOSAGE FORM, BID (2 DF 2 EVERY 1 DAYS, AEROSOL, METERED DOSE)
     Route: 065
  53. ALVESCO [Suspect]
     Active Substance: CICLESONIDE
     Indication: Product used for unknown indication
     Dosage: 2 DOSAGE FORM, BID (2 DF 2 EVERY 1 DAYS)
     Route: 065
  54. ALVESCO [Suspect]
     Active Substance: CICLESONIDE
     Dosage: 2 DOSAGE FORM, BID(2 DF 2 EVERY 1 DAYS)
     Route: 065
  55. BISOPROLOL FUMARATE [Suspect]
     Active Substance: BISOPROLOL FUMARATE
     Indication: Product used for unknown indication
     Dosage: 0.25 DOSAGE FORM, QD (0.25 DF 1 EVERY 1 DAYS)
     Route: 065
  56. BISOPROLOL FUMARATE [Suspect]
     Active Substance: BISOPROLOL FUMARATE
     Dosage: 2.5 MILLIGRAM, QD (2.5 MG 1 EVERY 1 DAYS)
     Route: 065
  57. DOXYCYCLINE HYDROCHLORIDE [Suspect]
     Active Substance: DOXYCYCLINE HYDROCHLORIDE
     Indication: Product used for unknown indication
     Dosage: 100 MILLIGRAM, BID (100 MG 2 EVERY 1 DAYS)
     Route: 048
  58. DOXYCYCLINE HYDROCHLORIDE [Suspect]
     Active Substance: DOXYCYCLINE HYDROCHLORIDE
     Dosage: 100 MILLIGRAM, BID (100 MG 2 EVERY 1 DAYS)
     Route: 065
  59. DOXYCYCLINE HYDROCHLORIDE [Suspect]
     Active Substance: DOXYCYCLINE HYDROCHLORIDE
     Dosage: 100 MILLIGRAM (100 MG)
     Route: 065
  60. DOXYCYCLINE HYDROCHLORIDE [Suspect]
     Active Substance: DOXYCYCLINE HYDROCHLORIDE
     Dosage: 100 MILLIGRAM, BID (100 MG 2 EVERY 1 DAYS)
     Route: 048
  61. DOXYCYCLINE HYDROCHLORIDE [Suspect]
     Active Substance: DOXYCYCLINE HYDROCHLORIDE
     Dosage: 100 MILLIGRAM, BID (100 MG 2 EVERY 1 DAYS)
     Route: 065
  62. DOXYCYCLINE HYDROCHLORIDE [Suspect]
     Active Substance: DOXYCYCLINE HYDROCHLORIDE
     Dosage: 100 MILLIGRAM, BID (100 MG 2 EVERY 1 DAYS)
     Route: 048
  63. PREDNISONE [Suspect]
     Active Substance: PREDNISONE
     Indication: Product used for unknown indication
     Dosage: 50 MILLIGRAM, QD (50 MG 1 EVERY 1 DAYS)
     Route: 065
  64. PREDNISONE [Suspect]
     Active Substance: PREDNISONE
     Dosage: 50 MILLIGRAM, QD (50 MG 1 EVERY 1 DAYS)
     Route: 048
  65. PREDNISONE [Suspect]
     Active Substance: PREDNISONE
     Dosage: 50 MILLIGRAM, QD (50 MG 1 EVERY 1 DAYS)
     Route: 048
  66. PREDNISONE [Suspect]
     Active Substance: PREDNISONE
     Dosage: 25 MILLIGRAM, QD (25 MG 1 EVERY 1 DAYS)
     Route: 065
  67. PREDNISONE [Suspect]
     Active Substance: PREDNISONE
     Dosage: 5 MILLIGRAM
     Route: 065
  68. PREDNISONE [Suspect]
     Active Substance: PREDNISONE
     Dosage: 5 MILLIGRAM
     Route: 065
  69. PREDNISONE [Suspect]
     Active Substance: PREDNISONE
     Dosage: 25 MILLIGRAM, QD (25 MG 1 EVERY 1 DAYS)
     Route: 065
  70. PREDNISONE [Suspect]
     Active Substance: PREDNISONE
     Dosage: 50 MILLIGRAM, QD (50 MG 1 EVERY 1 DAYS)
     Route: 048
  71. PREDNISONE [Suspect]
     Active Substance: PREDNISONE
     Dosage: 25 MILLIGRAM, QD (25 MG 1 EVERY 1 DAYS)
     Route: 065
  72. PREDNISONE [Suspect]
     Active Substance: PREDNISONE
     Dosage: 50 MILLIGRAM, QD (50 MG 1 EVERY 1 DAYS)
     Route: 048
  73. PREDNISONE [Suspect]
     Active Substance: PREDNISONE
     Dosage: 25 MILLIGRAM, QD (25 MG 1 EVERY 1 DAYS)
     Route: 065
  74. PREDNISONE [Suspect]
     Active Substance: PREDNISONE
     Dosage: 50 MILLIGRAM, QD (50 MG 1 EVERY 1 DAYS)
     Route: 048
  75. PREDNISONE [Suspect]
     Active Substance: PREDNISONE
     Dosage: 50 MILLIGRAM, QD (50 MG 1 EVERY 1 DAYS)
     Route: 048
  76. PREDNISONE [Suspect]
     Active Substance: PREDNISONE
     Dosage: 5 MILLIGRAM
     Route: 065
  77. PREDNISONE [Suspect]
     Active Substance: PREDNISONE
     Dosage: 40 MILLIGRAM, QD (40 MG 1 EVERY 1 DAYS)
     Route: 065
  78. PREDNISONE [Suspect]
     Active Substance: PREDNISONE
     Dosage: 50 MILLIGRAM, QD (50 MG 1 EVERY 1 DAYS)
     Route: 065
  79. PREDNISONE [Suspect]
     Active Substance: PREDNISONE
     Dosage: 50 MILLIGRAM, QD (50 MG 1 EVERY 1 DAYS)
     Route: 065
  80. PREDNISONE [Suspect]
     Active Substance: PREDNISONE
     Dosage: 50 MILLIGRAM, QD (50 MG 1 EVERY 1 DAYS)
     Route: 065
  81. ATROVENT HFA [Suspect]
     Active Substance: IPRATROPIUM BROMIDE
     Indication: Product used for unknown indication
     Dosage: 20 MICROGRAM, QID (20 UG 4 EVERY 1 DAYS, METERED-DOSE (AEROSOL))
     Route: 055
  82. ATROVENT HFA [Suspect]
     Active Substance: IPRATROPIUM BROMIDE
     Dosage: 20 MILLIGRAM
     Route: 065
  83. ATROVENT HFA [Suspect]
     Active Substance: IPRATROPIUM BROMIDE
     Dosage: 20 MILLIGRAM, QID (4 EVERY 1 DAYS)
     Route: 055
  84. BREO ELLIPTA [Suspect]
     Active Substance: FLUTICASONE FUROATE\VILANTEROL TRIFENATATE
     Indication: Product used for unknown indication
     Dosage: 1 DOSAGE FORM, QD (1 DF 1 EVERY 1 DAYS)
     Route: 055
  85. BREO ELLIPTA [Suspect]
     Active Substance: FLUTICASONE FUROATE\VILANTEROL TRIFENATATE
     Dosage: 1 DOSAGE FORM, QD (1 DF 1 EVERY 1 DAYS)
     Route: 055
  86. BREO ELLIPTA [Suspect]
     Active Substance: FLUTICASONE FUROATE\VILANTEROL TRIFENATATE
     Dosage: 1 DOSAGE FORM, QD (1 DF 1 EVERY 1 DAYS)
     Route: 055
  87. BREO ELLIPTA [Suspect]
     Active Substance: FLUTICASONE FUROATE\VILANTEROL TRIFENATATE
     Dosage: 1 DOSAGE FORM, QD ( 1 EVERY 24 HOURS)
     Route: 065
  88. BREO ELLIPTA [Suspect]
     Active Substance: FLUTICASONE FUROATE\VILANTEROL TRIFENATATE
     Dosage: 1 DOSAGE FORM, QD (1 EVERY 1 DAYS)
     Route: 055
  89. BREO ELLIPTA [Suspect]
     Active Substance: FLUTICASONE FUROATE\VILANTEROL TRIFENATATE
     Indication: Product used for unknown indication
     Dosage: 1 DOSAGE FORM, QD (1 DF 1 EVERY 1 DAYS, INHALATION)
     Route: 055
  90. BREO ELLIPTA [Suspect]
     Active Substance: FLUTICASONE FUROATE\VILANTEROL TRIFENATATE
     Dosage: 1 DOSAGE FORM, QD (1 EVERY 1 DAYS)
     Route: 055
  91. PERINDOPRIL [Suspect]
     Active Substance: PERINDOPRIL
     Indication: Product used for unknown indication
     Dosage: 8 MILLIGRAM, QD (8 MG 1 EVERY 1 DAYS)
     Route: 065
  92. INDAPAMIDE\PERINDOPRIL ERBUMINE [Suspect]
     Active Substance: INDAPAMIDE\PERINDOPRIL ERBUMINE
     Indication: Product used for unknown indication
     Dosage: 1 DOSAGE FORM, QD (1 DF 1 EVERY 1 DAYS)
     Route: 065
  93. INDAPAMIDE\PERINDOPRIL ERBUMINE [Suspect]
     Active Substance: INDAPAMIDE\PERINDOPRIL ERBUMINE
     Dosage: 1 DOSAGE FORM, QD (1 DF 1 EVERY 1 DAYS)
     Route: 065
  94. INDAPAMIDE\PERINDOPRIL ERBUMINE [Suspect]
     Active Substance: INDAPAMIDE\PERINDOPRIL ERBUMINE
     Dosage: 1 DOSAGE FORM, QD (1 DF 1 EVERY 1 DAYS)
     Route: 065
  95. INDAPAMIDE\PERINDOPRIL ERBUMINE [Suspect]
     Active Substance: INDAPAMIDE\PERINDOPRIL ERBUMINE
     Dosage: 1 DOSAGE FORM, QD (1 DF 1 EVERY 1 DAYS)
     Route: 065
  96. INDAPAMIDE\PERINDOPRIL ERBUMINE [Suspect]
     Active Substance: INDAPAMIDE\PERINDOPRIL ERBUMINE
     Dosage: 1 DOSAGE FORM, QD (1 DF 1 EVERY 1 DAYS)
     Route: 065
  97. INDAPAMIDE\PERINDOPRIL ERBUMINE [Suspect]
     Active Substance: INDAPAMIDE\PERINDOPRIL ERBUMINE
     Dosage: 1 DOSAGE FORM, QD (1 DF 1 EVERY 1 DAYS)
     Route: 065
  98. CYCLOBENZAPRINE [Suspect]
     Active Substance: CYCLOBENZAPRINE
     Indication: Product used for unknown indication
     Dosage: 10 MILLIGRAM, TID (10 MG 3 EVERY 1 DAYS)
     Route: 048
  99. ENTRESTO [Suspect]
     Active Substance: SACUBITRIL\VALSARTAN
     Indication: Product used for unknown indication
     Dosage: 1 DOSAGE FORM, BID (1 DF 2 EVERY 1 DAYS)
     Route: 048
  100. ENTRESTO [Suspect]
     Active Substance: SACUBITRIL\VALSARTAN
     Dosage: 1 DOSAGE FORM, BID (1 DF 2 EVERY 1 DAYS)
     Route: 048
  101. ENTRESTO [Suspect]
     Active Substance: SACUBITRIL\VALSARTAN
     Dosage: 1 DOSAGE FORM, BID (1 DF 2 EVERY 1 DAYS)
     Route: 048
  102. ENTRESTO [Suspect]
     Active Substance: SACUBITRIL\VALSARTAN
     Dosage: 1 DOSAGE FORM, BID
     Route: 048
  103. ENTRESTO [Suspect]
     Active Substance: SACUBITRIL\VALSARTAN
     Dosage: 1 DOSAGE FORM, BID (1 DF 2 EVERY 1 DAYS)
     Route: 048
  104. ENTRESTO [Suspect]
     Active Substance: SACUBITRIL\VALSARTAN
     Dosage: 1 DOSAGE FORM, BID (1 DF 2 EVERY 1 DAYS)
     Route: 048
  105. ENTRESTO [Suspect]
     Active Substance: SACUBITRIL\VALSARTAN
     Dosage: 1 DOSAGE FORM, BID (1 DF 2 EVERY 1 DAYS)
     Route: 048
  106. ENTRESTO [Suspect]
     Active Substance: SACUBITRIL\VALSARTAN
     Dosage: 1 DOSAGE FORM, BID (1 DF 2 EVERY 1 DAYS)
     Route: 048
  107. ENTRESTO [Suspect]
     Active Substance: SACUBITRIL\VALSARTAN
     Dosage: 1 DOSAGE FORM, BID (1 DF 2 EVERY 1 DAYS)
     Route: 048
  108. ENTRESTO [Suspect]
     Active Substance: SACUBITRIL\VALSARTAN
     Dosage: 1 DOSAGE FORM, BID (2 EVERY 1 DAYS)
     Route: 048
  109. FLUTICASONE PROPIONATE\SALMETEROL XINAFOATE [Suspect]
     Active Substance: FLUTICASONE PROPIONATE\SALMETEROL XINAFOATE
     Indication: Product used for unknown indication
     Dosage: 2 DOSAGE FORM, BID (2 DF 2 EVERY 1 DAYS, INHALATION)
     Route: 055
  110. FUROSEMIDE [Suspect]
     Active Substance: FUROSEMIDE
     Indication: Product used for unknown indication
     Dosage: 20 MILLIGRAM, QD (20 MG 1 EVERY 1 DAYS)
     Route: 065
  111. FUROSEMIDE [Suspect]
     Active Substance: FUROSEMIDE
     Dosage: 20 MILLIGRAM, QD (20 MG 1 EVERY 1 DAYS)
     Route: 065
  112. FUROSEMIDE [Suspect]
     Active Substance: FUROSEMIDE
     Dosage: 20 MILLIGRAM, QD (20 MG 1 EVERY 1 DAYS)
     Route: 065
  113. IVABRADINE HYDROCHLORIDE [Suspect]
     Active Substance: IVABRADINE HYDROCHLORIDE
     Indication: Product used for unknown indication
     Dosage: 7.5 MILLIGRAM, BID (7.5 MG 2 EVERY 1 DAYS)
     Route: 048
  114. IVABRADINE HYDROCHLORIDE [Suspect]
     Active Substance: IVABRADINE HYDROCHLORIDE
     Dosage: 7.5 MILLIGRAM
     Route: 048
  115. KETOROLAC TROMETHAMINE [Suspect]
     Active Substance: KETOROLAC TROMETHAMINE
     Indication: Product used for unknown indication
     Dosage: 10 MILLIGRAM, TID (10 MG 3 EVERY 1 DAYS)
     Route: 048
  116. MEPOLIZUMAB [Suspect]
     Active Substance: MEPOLIZUMAB
     Indication: Asthma
     Dosage: 100 MILLIGRAM
     Route: 042
  117. MEPOLIZUMAB [Suspect]
     Active Substance: MEPOLIZUMAB
     Dosage: 100 MILLIGRAM, QD (1 EVERY 1 DAYS)
     Route: 042
  118. AZITHROMYCIN ANHYDROUS [Suspect]
     Active Substance: AZITHROMYCIN ANHYDROUS
     Indication: Product used for unknown indication
     Dosage: 250 MILLIGRAM
     Route: 065
  119. ALBUTEROL SULFATE [Suspect]
     Active Substance: ALBUTEROL SULFATE
     Indication: Product used for unknown indication
     Dosage: 2 DOSAGE FORM
     Route: 055
  120. ALBUTEROL SULFATE [Suspect]
     Active Substance: ALBUTEROL SULFATE
     Dosage: 2 DOSAGE FORM
     Route: 055
  121. ALBUTEROL SULFATE [Suspect]
     Active Substance: ALBUTEROL SULFATE
     Dosage: 2 DOSAGE FORM
     Route: 055
  122. ALBUTEROL SULFATE [Suspect]
     Active Substance: ALBUTEROL SULFATE
     Dosage: 2 DOSAGE FORM
     Route: 055
  123. ALBUTEROL SULFATE [Suspect]
     Active Substance: ALBUTEROL SULFATE
     Dosage: 2 DOSAGE FORM
     Route: 055
  124. GLYCOPYRROLATE [Suspect]
     Active Substance: GLYCOPYRROLATE
     Indication: Asthma
     Dosage: 1 DOSAGE FORM, QD (1 DF 1 EVERY 1 DAYS)
     Route: 055
  125. GLYCOPYRROLATE [Suspect]
     Active Substance: GLYCOPYRROLATE
     Dosage: 50 MICROGRAM, QD (1 DF 1 EVERY 1 DAYS)
     Route: 055
  126. GLYCOPYRROLATE [Suspect]
     Active Substance: GLYCOPYRROLATE
     Dosage: 50 MICROGRAM, QD (1 DF 1 EVERY 1 DAYS)
     Route: 055
  127. GLYCOPYRROLATE [Suspect]
     Active Substance: GLYCOPYRROLATE
     Dosage: 50 MILLIGRAM
     Route: 065
  128. GLYCOPYRROLATE [Suspect]
     Active Substance: GLYCOPYRROLATE
     Dosage: 1 DOSAGE FORM
     Route: 065
  129. SPIRIVA RESPIMAT [Suspect]
     Active Substance: TIOTROPIUM BROMIDE
     Indication: Product used for unknown indication
     Dosage: 2 DOSAGE FORM, BID (2 DF 1 EVERY 1 DAYS)
     Route: 065
  130. SPIRONOLACTONE [Suspect]
     Active Substance: SPIRONOLACTONE
     Indication: Product used for unknown indication
     Dosage: 12.5 MILLIGRAM, QD (1 EVERY 1 DAYS)
     Route: 065
  131. UMECLIDINIUM BROMIDE [Suspect]
     Active Substance: UMECLIDINIUM BROMIDE
     Indication: Product used for unknown indication
     Dosage: 1 DOSAGE FORM, QD (1 EVERY 1 DAYS)
     Route: 065
  132. VENTOLIN HFA [Suspect]
     Active Substance: ALBUTEROL SULFATE
     Indication: Product used for unknown indication
     Dosage: 2 DOSAGE FORM
     Route: 065
  133. VENTOLIN HFA [Suspect]
     Active Substance: ALBUTEROL SULFATE
     Dosage: 2 DOSAGE FORM
     Route: 065
  134. VENTOLIN HFA [Suspect]
     Active Substance: ALBUTEROL SULFATE
     Indication: Product used for unknown indication
     Dosage: 2 DOSAGE FORM (METERED-DOSE (AEROSOL))
     Route: 065
  135. VENTOLIN HFA [Suspect]
     Active Substance: ALBUTEROL SULFATE
     Dosage: 2 DOSAGE FORM (METERED-DOSE (AEROSOL))
     Route: 065
  136. ZENHALE [Suspect]
     Active Substance: FORMOTEROL FUMARATE\MOMETASONE FUROATE
     Indication: Product used for unknown indication
     Dosage: 2 DOSAGE FORM, QD
     Route: 055
  137. ZENHALE [Suspect]
     Active Substance: FORMOTEROL FUMARATE\MOMETASONE FUROATE
     Dosage: UNK (AEROSOL, METERED DOSE)
     Route: 065
  138. ZENHALE [Suspect]
     Active Substance: FORMOTEROL FUMARATE\MOMETASONE FUROATE
     Dosage: 2 DOSAGE FORM, BID (2 EVERY 1 DAYS)
     Route: 055
  139. BUTALBITAL AND ACETAMINOPHEN [Suspect]
     Active Substance: ACETAMINOPHEN\BUTALBITAL
     Indication: Product used for unknown indication
     Dosage: UNK
     Route: 048
  140. FUROSEMIDE\POTASSIUM CHLORIDE [Suspect]
     Active Substance: FUROSEMIDE\POTASSIUM CHLORIDE
     Indication: Product used for unknown indication
     Dosage: UNK
     Route: 065
  141. FUROSEMIDE\POTASSIUM CHLORIDE [Suspect]
     Active Substance: FUROSEMIDE\POTASSIUM CHLORIDE
     Dosage: 20 MILLIGRAM
     Route: 065
  142. FUROSEMIDE\POTASSIUM CHLORIDE [Suspect]
     Active Substance: FUROSEMIDE\POTASSIUM CHLORIDE
     Dosage: 20 MILLIGRAM, QD (1 EVERY 1 DAYS)
     Route: 065
  143. KETOROLAC [Suspect]
     Active Substance: KETOROLAC TROMETHAMINE
     Indication: Product used for unknown indication
     Dosage: 10 MILLIGRAM
     Route: 048
  144. KETOROLAC [Suspect]
     Active Substance: KETOROLAC TROMETHAMINE
     Dosage: 10 MILLIGRAM, TID (3 EVERY 1 DAYS)
     Route: 048
  145. PERINDOPRIL [Suspect]
     Active Substance: PERINDOPRIL
     Indication: Product used for unknown indication
     Dosage: 8 MILLIGRAM, QD (1 EVERY 1 DAYS)
     Route: 065
  146. PERINDOPRIL [Suspect]
     Active Substance: PERINDOPRIL
     Dosage: 8 MILLIGRAM
     Route: 065
  147. TIOTROPIUM BROMIDE MONOHYDRATE [Suspect]
     Active Substance: TIOTROPIUM BROMIDE MONOHYDRATE
     Indication: Product used for unknown indication
     Dosage: 2 DOSAGE FORM, QD (1 EVERY 1 DAYS)
     Route: 065
  148. UMECLIDINIUM BROMIDE\VILANTEROL TRIFENATATE [Suspect]
     Active Substance: UMECLIDINIUM BROMIDE\VILANTEROL TRIFENATATE
     Indication: Product used for unknown indication
     Dosage: 1 DOSAGE FORM
     Route: 065
  149. UMECLIDINIUM BROMIDE\VILANTEROL TRIFENATATE [Suspect]
     Active Substance: UMECLIDINIUM BROMIDE\VILANTEROL TRIFENATATE
     Dosage: 1 DOSAGE FORM, QD (1 EVERY 1 DAYS)
     Route: 065
  150. FLUTICASONE\FORMOTEROL [Suspect]
     Active Substance: FLUTICASONE\FORMOTEROL
     Indication: Product used for unknown indication
     Dosage: 2 DOSAGE FORM
     Route: 065
  151. FORMOTEROL [Suspect]
     Active Substance: FORMOTEROL
     Indication: Product used for unknown indication
     Dosage: 2 DOSAGE FORM
     Route: 065
  152. FORMOTEROL [Suspect]
     Active Substance: FORMOTEROL
     Dosage: UNK
     Route: 065
  153. VARENICLINE TARTRATE [Suspect]
     Active Substance: VARENICLINE TARTRATE
     Indication: Product used for unknown indication
     Dosage: UNK
     Route: 065
  154. VARENICLINE TARTRATE [Suspect]
     Active Substance: VARENICLINE TARTRATE
     Dosage: 2 DOSAGE FORM
     Route: 065
  155. VARENICLINE TARTRATE [Suspect]
     Active Substance: VARENICLINE TARTRATE
     Dosage: 2 DOSAGE FORM (METERED-DOSE (AEROSOL))
     Route: 065
  156. VARENICLINE TARTRATE [Suspect]
     Active Substance: VARENICLINE TARTRATE
     Dosage: UNK
     Route: 065
  157. PREDNISONE [Suspect]
     Active Substance: PREDNISONE
     Indication: Product used for unknown indication
     Dosage: 40 MILLIGRAM, QD (1 EVERY 24 HOUR)
     Route: 065
  158. PREDNISONE [Suspect]
     Active Substance: PREDNISONE
     Dosage: 25 MILLIGRAM, QD (1 EVERY 24 HOURS)
     Route: 065
  159. PREDNISONE [Suspect]
     Active Substance: PREDNISONE
     Dosage: 50 MILLIGRAM, QD (1 EVERY 24 HOUR)
     Route: 065
  160. PREDNISONE [Suspect]
     Active Substance: PREDNISONE
     Dosage: 5 MILLIGRAM
     Route: 065
  161. PREDNISONE [Suspect]
     Active Substance: PREDNISONE
     Dosage: 2.5 MILLIGRAM, QD  (1 EVERY 24 HOUR)
     Route: 065
  162. PREDNISONE [Suspect]
     Active Substance: PREDNISONE
     Dosage: 50 MILLIGRAM, QD (1 EVERY 1 DAYS)
     Route: 065
  163. AZITHROMYCIN [Suspect]
     Active Substance: AZITHROMYCIN
     Indication: Product used for unknown indication
     Dosage: 250 MILLIGRAM
     Route: 065
  164. BISOPROLOL [Suspect]
     Active Substance: BISOPROLOL\BISOPROLOL FUMARATE
     Indication: Product used for unknown indication
     Dosage: 0.25 MILLIGRAM, QD (1 EVERY 24 HOURS)
     Route: 065
  165. BISOPROLOL [Suspect]
     Active Substance: BISOPROLOL\BISOPROLOL FUMARATE
     Dosage: 2.5 MILLIGRAM, QD (1 EVERY 1 DAYS)
     Route: 065
  166. BISOPROLOL [Suspect]
     Active Substance: BISOPROLOL\BISOPROLOL FUMARATE
     Indication: Product used for unknown indication
     Dosage: 2.5 MILLIGRAM, QD (1 EVERY 24 HOURS)
     Route: 065
  167. BISOPROLOL [Suspect]
     Active Substance: BISOPROLOL\BISOPROLOL FUMARATE
     Dosage: 0.25 DOSAGE FORM, QD (1 EVERY 1 DAYS)
     Route: 065
  168. CICLESONIDE [Suspect]
     Active Substance: CICLESONIDE
     Indication: Product used for unknown indication
     Dosage: 2 DOSAGE FORM, BID (2 EVERY 1 DAY)
     Route: 065
  169. CICLESONIDE [Suspect]
     Active Substance: CICLESONIDE
     Indication: Product used for unknown indication
     Dosage: 2 DOSAGE FORM, BID (2 EVERY 1 DAY)
     Route: 065
  170. CYCLOBENZAPRINE HYDROCHLORIDE\DICLOFENAC POTASSIUM [Suspect]
     Active Substance: CYCLOBENZAPRINE HYDROCHLORIDE\DICLOFENAC POTASSIUM
     Indication: Product used for unknown indication
     Dosage: 10 MILLIGRAM
     Route: 065
  171. CYCLOBENZAPRINE HYDROCHLORIDE\DICLOFENAC POTASSIUM [Suspect]
     Active Substance: CYCLOBENZAPRINE HYDROCHLORIDE\DICLOFENAC POTASSIUM
     Dosage: 10 MILLIGRAM, TID (3 EVERY 1 DAYS)
     Route: 065
  172. DOXYCYCLINE HYCLATE [Suspect]
     Active Substance: DOXYCYCLINE HYCLATE
     Indication: Product used for unknown indication
     Dosage: 100 MILLIGRAM, BID ( 2 EVERY 1 DAY)
     Route: 065
  173. DOXYCYCLINE HYCLATE [Suspect]
     Active Substance: DOXYCYCLINE HYCLATE
     Dosage: 100 MILLIGRAM
     Route: 065
  174. DOXYCYCLINE HYCLATE [Suspect]
     Active Substance: DOXYCYCLINE HYCLATE
     Dosage: 100 MILLIGRAM, BID ( 2 EVERY 1 DAY)
     Route: 048
  175. DOXYCYCLINE HYCLATE [Suspect]
     Active Substance: DOXYCYCLINE HYCLATE
     Dosage: 100 MILLIGRAM, BID ( 2 EVERY 1 DAY)
     Route: 065
  176. DOXYCYCLINE HYCLATE [Suspect]
     Active Substance: DOXYCYCLINE HYCLATE
     Indication: Product used for unknown indication
     Dosage: 100 MILLIGRAM, BID (2 EVERY 1 DAY)
     Route: 048
  177. DOXYCYCLINE HYCLATE [Suspect]
     Active Substance: DOXYCYCLINE HYCLATE
     Dosage: 100 MILLIGRAM, BID (2 EVERY 1 DAY)
     Route: 048
  178. INDAPAMIDE\PERINDOPRIL ERBUMINE [Suspect]
     Active Substance: INDAPAMIDE\PERINDOPRIL ERBUMINE
     Indication: Product used for unknown indication
     Dosage: 1 DOSAGE FORM
     Route: 065
  179. IPRATROPIUM [Suspect]
     Active Substance: IPRATROPIUM
     Indication: Product used for unknown indication
     Dosage: 20 MILLIGRAM
     Route: 065
  180. ALBUTEROL [Suspect]
     Active Substance: ALBUTEROL
     Indication: Product used for unknown indication
     Dosage: 2 DOSAGE FORM
     Route: 065
  181. SPIRIVA [Suspect]
     Active Substance: TIOTROPIUM BROMIDE MONOHYDRATE
     Indication: Product used for unknown indication
     Dosage: 2 DOSAGE FORM
     Route: 065
  182. SPIRIVA [Suspect]
     Active Substance: TIOTROPIUM BROMIDE MONOHYDRATE
     Dosage: 2 DOSAGE FORM, QD (1 EVERY 1 DAYS)
     Route: 065
  183. SPIRONOLACTONE [Suspect]
     Active Substance: SPIRONOLACTONE
     Indication: Product used for unknown indication
     Dosage: 12.5 MILLIGRAM
     Route: 065
  184. SPIRONOLACTONE [Suspect]
     Active Substance: SPIRONOLACTONE
     Dosage: 12.5 MILLIGRAM, QD (1 EVERY 1 DAYS)
     Route: 065
  185. SPIRONOLACTONE [Suspect]
     Active Substance: SPIRONOLACTONE
     Dosage: 12.5 MILLIGRAM, QD (1 EVERY 1 DAYS)
     Route: 065
  186. UMECLIDINIUM BROMIDE\VILANTEROL TRIFENATATE [Suspect]
     Active Substance: UMECLIDINIUM BROMIDE\VILANTEROL TRIFENATATE
     Indication: Product used for unknown indication
     Dosage: 1 DOSAGE FORM
     Route: 065
  187. UMECLIDINIUM BROMIDE\VILANTEROL TRIFENATATE [Suspect]
     Active Substance: UMECLIDINIUM BROMIDE\VILANTEROL TRIFENATATE
     Dosage: 1 DOSAGE FORM, QD (1 EVERY 1 DAYS)
     Route: 065
  188. SACUBITRIL\VALSARTAN [Suspect]
     Active Substance: SACUBITRIL\VALSARTAN
     Indication: Product used for unknown indication
     Dosage: 1 DOSAGE FORM, BID (2 EVERY 1 DAY)
     Route: 048
  189. ALVESCO [Suspect]
     Active Substance: CICLESONIDE
     Indication: Product used for unknown indication
     Dosage: 2 DOSAGE FORM, BID (2 EVERY 1 DAY)
     Route: 065
  190. TRAMADOL HYDROCHLORIDE [Suspect]
     Active Substance: TRAMADOL HYDROCHLORIDE
     Indication: Product used for unknown indication
     Dosage: UNK
     Route: 048
  191. PERINDOPRIL [Suspect]
     Active Substance: PERINDOPRIL
     Indication: Product used for unknown indication
     Dosage: 8 MILLIGRAM, QD (1 EVERY 1 DAYS)
     Route: 065
  192. FLUTICASONE PROPIONATE\FORMOTEROL FUMARATE [Suspect]
     Active Substance: FLUTICASONE PROPIONATE\FORMOTEROL FUMARATE
     Indication: Product used for unknown indication
     Dosage: 2 DOSAGE FORM
     Route: 065
  193. FLUTICASONE PROPIONATE\FORMOTEROL FUMARATE [Suspect]
     Active Substance: FLUTICASONE PROPIONATE\FORMOTEROL FUMARATE
     Dosage: 2 DOSAGE FORM, BID (2 EVERY 1 DAYS)
     Route: 055
  194. FORMOTEROL FUMARATE [Suspect]
     Active Substance: FORMOTEROL FUMARATE
     Indication: Product used for unknown indication
     Dosage: 2 DOSAGE FORM
     Route: 065
  195. FORMOTEROL FUMARATE [Suspect]
     Active Substance: FORMOTEROL FUMARATE
     Dosage: UNK
     Route: 065
  196. MONTELUKAST [Suspect]
     Active Substance: MONTELUKAST
     Indication: Product used for unknown indication
     Dosage: 10 MILLIGRAM, QD (1 EVERY 1 DAYS)
     Route: 065
  197. MONTELUKAST [Suspect]
     Active Substance: MONTELUKAST
     Dosage: 10 MILLIGRAM, QD (1 EVERY 1 DAYS)
     Route: 048
  198. ACETAMINOPHEN\BUTALBITAL [Suspect]
     Active Substance: ACETAMINOPHEN\BUTALBITAL
     Indication: Product used for unknown indication
     Dosage: UNK
     Route: 065
  199. ACETAMINOPHEN\BUTALBITAL [Suspect]
     Active Substance: ACETAMINOPHEN\BUTALBITAL
     Dosage: UNK
     Route: 048
  200. AMLODIPINE BESYLATE [Suspect]
     Active Substance: AMLODIPINE BESYLATE
     Indication: Product used for unknown indication
     Dosage: 2.5 MILLIGRAM, QD (1 EVERY 1 DAYS)
     Route: 065
  201. ATROVENT HFA [Suspect]
     Active Substance: IPRATROPIUM BROMIDE
     Indication: Product used for unknown indication
     Dosage: 20 MILLIGRAM
     Route: 065
  202. BREO ELLIPTA [Suspect]
     Active Substance: FLUTICASONE FUROATE\VILANTEROL TRIFENATATE
     Indication: Product used for unknown indication
     Dosage: 1 DOSAGE FORM, QD (1 EVERY 1 DAYS)
     Route: 055
  203. INDAPAMIDE\PERINDOPRIL [Suspect]
     Active Substance: INDAPAMIDE\PERINDOPRIL
     Indication: Product used for unknown indication
     Dosage: 1 DOSAGE FORM, QD (1 EVERY 1 DAYS)
     Route: 065
  204. INDAPAMIDE\PERINDOPRIL [Suspect]
     Active Substance: INDAPAMIDE\PERINDOPRIL
     Indication: Product used for unknown indication
     Dosage: 1 DOSAGE FORM, QD (1 EVERY 1 DAYS)
     Route: 065
  205. ENTRESTO [Suspect]
     Active Substance: SACUBITRIL\VALSARTAN
     Indication: Product used for unknown indication
     Dosage: 1 DOSAGE FORM, BID (2 EVERY 1 DAYS)
     Route: 048
  206. IVABRADINE HYDROCHLORIDE [Suspect]
     Active Substance: IVABRADINE HYDROCHLORIDE
     Indication: Product used for unknown indication
     Dosage: 7.5 MILLIGRAM, BID (2 EVERY 1 DAYS)
     Route: 048
  207. IVABRADINE HYDROCHLORIDE [Suspect]
     Active Substance: IVABRADINE HYDROCHLORIDE
     Dosage: 7.5 MILLIGRAM
     Route: 048
  208. MEPOLIZUMAB [Suspect]
     Active Substance: MEPOLIZUMAB
     Indication: Asthma
     Dosage: 100 MILLIGRAM, QD (1 EVERY 1 DAYS)
     Route: 042
  209. MONTELUKAST SODIUM [Suspect]
     Active Substance: MONTELUKAST SODIUM
     Indication: Product used for unknown indication
     Dosage: 10 MILLIGRAM, QD (1 EVERY 1 DAYS)
     Route: 065
  210. MONTELUKAST SODIUM [Suspect]
     Active Substance: MONTELUKAST SODIUM
     Dosage: 10 MILLIGRAM, QD (1 EVERY 1 DAYS)
     Route: 048
  211. INSPRA [Suspect]
     Active Substance: EPLERENONE
     Indication: Product used for unknown indication
     Dosage: 50 MILLIGRAM, QD (1 EVERY 1 DAYS)
     Route: 065
  212. INSPRA [Suspect]
     Active Substance: EPLERENONE
     Dosage: 50 MILLIGRAM, QD (1 EVERY 1 DAYS)
     Route: 048
  213. ZENHALE [Suspect]
     Active Substance: FORMOTEROL FUMARATE\MOMETASONE FUROATE
     Indication: Product used for unknown indication
     Dosage: UNK
     Route: 065
  214. INFLUENZA VIRUS VACCINE [Concomitant]
     Active Substance: INFLUENZA VIRUS VACCINE
     Dosage: UNK
     Route: 065

REACTIONS (14)
  - Asthma [Unknown]
  - Asthma-chronic obstructive pulmonary disease overlap syndrome [Unknown]
  - Breath sounds abnormal [Unknown]
  - Bronchial hyperreactivity [Unknown]
  - Bronchitis [Unknown]
  - Cardiac disorder [Unknown]
  - Cardiomyopathy [Unknown]
  - Drug intolerance [Unknown]
  - Dyspnoea [Unknown]
  - Ischaemic cardiomyopathy [Unknown]
  - Obstructive airways disorder [Unknown]
  - Pulmonary function test abnormal [Unknown]
  - Eosinophilia [Unknown]
  - Drug ineffective [Unknown]
